FAERS Safety Report 13809849 (Version 5)
Quarter: 2018Q1

REPORT INFORMATION
  Report Type: Report from Study
  Country: US (occurrence: US)
  Receive Date: 20170728
  Receipt Date: 20180125
  Transmission Date: 20180508
  Serious: No
  Sender: FDA-Public Use
  Company Number: US-AMGEN-USASL2017084339

PATIENT
  Age: 65 Year
  Sex: Male

DRUGS (1)
  1. REPATHA [Suspect]
     Active Substance: EVOLOCUMAB
     Indication: HYPERCHOLESTEROLAEMIA
     Dosage: 140 MG, Q2WK
     Route: 065
     Dates: start: 201705, end: 2017

REACTIONS (4)
  - Myalgia [Recovered/Resolved]
  - Musculoskeletal discomfort [Unknown]
  - Arthralgia [Recovered/Resolved]
  - Ligament pain [Recovered/Resolved]

NARRATIVE: CASE EVENT DATE: 2017
